FAERS Safety Report 9647670 (Version 3)
Quarter: 2013Q4

REPORT INFORMATION
  Report Type: Spontaneous
  Country: FR (occurrence: FR)
  Receive Date: 20131028
  Receipt Date: 20131223
  Transmission Date: 20140711
  Serious: Yes (Hospitalization, Other)
  Sender: FDA-Public Use
  Company Number: FR-009507513-1310FRA009849

PATIENT
  Age: 75 Year
  Sex: Female
  Weight: 57 kg

DRUGS (7)
  1. NORSET [Suspect]
     Indication: DEPRESSION
     Dosage: 2 DF, QD
     Route: 048
     Dates: start: 2012, end: 20131021
  2. DAFALGAN [Concomitant]
     Dosage: 1 G, Q4D
     Dates: start: 20131021
  3. SEROPRAM [Concomitant]
     Dosage: 20 MG, QD
     Dates: start: 20131021
  4. LYRICA [Concomitant]
     Dosage: 25 MG, TID
     Dates: start: 20131021
  5. PROTELOS [Concomitant]
     Dosage: 2 G, QD
     Dates: start: 20131021
  6. KARDEGIC [Concomitant]
     Dosage: 75 MG, QD
     Dates: start: 20131021
  7. EUPANTOL [Concomitant]
     Dosage: 20 MG, QD
     Dates: start: 20131021

REACTIONS (5)
  - Pyrexia [Recovered/Resolved]
  - Blood creatine phosphokinase increased [Unknown]
  - Systemic inflammatory response syndrome [Recovered/Resolved]
  - Neutropenia [Recovered/Resolved]
  - Platelet count decreased [Not Recovered/Not Resolved]
